FAERS Safety Report 9959963 (Version 1)
Quarter: 2014Q1

REPORT INFORMATION
  Report Type: Report from Study
  Country: US (occurrence: US)
  Receive Date: 20140305
  Receipt Date: 20140305
  Transmission Date: 20141002
  Serious: No
  Sender: FDA-Public Use
  Company Number: US-ABBVIE-13P-163-1104846-00

PATIENT
  Age: 66 Year
  Sex: Male

DRUGS (7)
  1. HUMIRA [Suspect]
     Indication: PSORIASIS
     Dates: start: 20130206, end: 20130206
  2. HUMIRA [Suspect]
     Dates: start: 20130213
  3. HUMIRA [Suspect]
     Dates: start: 20130227
  4. LISINOPRIL [Concomitant]
     Indication: HYPERTENSION
  5. AMLODIPINE BESYLATE [Concomitant]
     Indication: HYPERTENSION
     Dosage: 5 MG ONCE DAILY
  6. LOVASTATIN [Concomitant]
     Indication: BLOOD CHOLESTEROL INCREASED
     Dosage: 40 MG DAILY
  7. TAMSULOSIN [Concomitant]
     Indication: POLLAKIURIA
     Dosage: 4 MG ONCE DAILY

REACTIONS (1)
  - Eye haemorrhage [Recovering/Resolving]
